FAERS Safety Report 5280535-2 (Version None)
Quarter: 2007Q1

REPORT INFORMATION
  Report Type: 
  Country: None (occurrence: None)
  Receive Date: 20070329
  Receipt Date: 20070319
  Transmission Date: 20070707
  Serious: Yes (Hospitalization, Other)
  Sender: FDA-Public Use
  Company Number: HQWYE499010NOV05

PATIENT
  Sex: Male
  Weight: 71.2 kg

DRUGS (5)
  1. RAPAMUNE [Suspect]
     Indication: PROPHYLAXIS AGAINST TRANSPLANT REJECTION
     Route: 048
     Dates: start: 20050109, end: 20050118
  2. RAPAMUNE [Suspect]
     Indication: IMMUNOSUPPRESSANT DRUG THERAPY
     Route: 048
     Dates: start: 20050119
  3. PREDNISONE [Concomitant]
     Route: 048
     Dates: start: 20050109, end: 20050117
  4. PREDNISONE [Concomitant]
     Route: 048
     Dates: start: 20050118
  5. CYCLOSPORINE [Concomitant]
     Route: 048
     Dates: start: 20050106

REACTIONS (1)
  - RENAL TUBULAR NECROSIS [None]
